FAERS Safety Report 15719508 (Version 1)
Quarter: 2018Q4

REPORT INFORMATION
  Report Type: Spontaneous
  Country: US (occurrence: US)
  Receive Date: 20181213
  Receipt Date: 20181213
  Transmission Date: 20190205
  Serious: Yes (Other)
  Sender: FDA-Public Use
  Company Number: US-TEVA-2018-US-985447

PATIENT
  Sex: Male

DRUGS (5)
  1. LOSARTAN. [Suspect]
     Active Substance: LOSARTAN
     Route: 065
  2. AMLODIPINE [Suspect]
     Active Substance: AMLODIPINE BESYLATE
     Route: 065
  3. CLONIDINE. [Concomitant]
     Active Substance: CLONIDINE
  4. LISINOPRIL. [Suspect]
     Active Substance: LISINOPRIL
     Route: 065
  5. VALSARTAN. [Suspect]
     Active Substance: VALSARTAN
     Route: 065

REACTIONS (6)
  - Ill-defined disorder [Unknown]
  - Anal incontinence [Unknown]
  - Chest pain [Not Recovered/Not Resolved]
  - Bedridden [Unknown]
  - Blood pressure fluctuation [Unknown]
  - Headache [Not Recovered/Not Resolved]
